FAERS Safety Report 22796136 (Version 4)
Quarter: 2023Q4

REPORT INFORMATION
  Report Type: Report from Study
  Country: US (occurrence: US)
  Receive Date: 20230808
  Receipt Date: 20231117
  Transmission Date: 20240109
  Serious: Yes (Hospitalization, Other)
  Sender: FDA-Public Use
  Company Number: US-ABBVIE-5356179

PATIENT
  Sex: Male
  Weight: 68.492 kg

DRUGS (1)
  1. HUMIRA [Suspect]
     Active Substance: ADALIMUMAB
     Indication: Rheumatoid arthritis
     Dosage: FORM STRENGTH: 40 MILLIGRAM?CITRATE FREE
     Route: 058

REACTIONS (4)
  - Cerebrovascular accident [Recovered/Resolved with Sequelae]
  - Colitis microscopic [Unknown]
  - Dysgraphia [Not Recovered/Not Resolved]
  - Face oedema [Unknown]
